FAERS Safety Report 8717839 (Version 3)
Quarter: 2015Q2

REPORT INFORMATION
  Report Type: Report from Study
  Country: US (occurrence: US)
  Receive Date: 20120810
  Receipt Date: 20150629
  Transmission Date: 20150821
  Serious: Yes (Hospitalization)
  Sender: FDA-Public Use
  Company Number: US-ROCHE-1097053

PATIENT
  Age: 37 Year
  Sex: Male

DRUGS (20)
  1. LOPRESSOR [Concomitant]
     Active Substance: METOPROLOL TARTRATE
     Route: 065
  2. FUROSEMIDE. [Concomitant]
     Active Substance: FUROSEMIDE
  3. ACETYLSALICYLIC ACID [Concomitant]
     Active Substance: ASPIRIN
  4. ADALAT [Concomitant]
     Active Substance: NIFEDIPINE
     Route: 048
  5. PROCARDIA (UNITED STATES) [Concomitant]
     Route: 065
  6. CAPOTEN [Concomitant]
     Active Substance: CAPTOPRIL
     Route: 065
  7. LORAZEPAN [Concomitant]
     Active Substance: LORAZEPAM
     Route: 048
  8. COUMADIN [Concomitant]
     Active Substance: WARFARIN SODIUM
  9. APRESOLINE HYDROCHLORIDE [Concomitant]
     Active Substance: HYDRALAZINE HYDROCHLORIDE
     Route: 048
  10. LORAZEPAN [Concomitant]
     Active Substance: LORAZEPAM
     Route: 048
  11. LIDOCAINE. [Concomitant]
     Active Substance: LIDOCAINE
  12. ADALAT [Concomitant]
     Active Substance: NIFEDIPINE
     Route: 048
  13. ACETAMINOPHEN. [Concomitant]
     Active Substance: ACETAMINOPHEN
  14. ACTIVASE [Suspect]
     Active Substance: ALTEPLASE
     Indication: PRODUCT USED FOR UNKNOWN INDICATION
     Route: 042
  15. NITRO-BID [Concomitant]
     Active Substance: NITROGLYCERIN
     Route: 065
  16. LOPRESSOR [Concomitant]
     Active Substance: METOPROLOL TARTRATE
     Route: 065
  17. ZANTAC [Concomitant]
     Active Substance: RANITIDINE HYDROCHLORIDE
     Route: 048
  18. RESTORIL [Concomitant]
     Active Substance: TEMAZEPAM
     Route: 048
  19. LORAZEPAN [Concomitant]
     Active Substance: LORAZEPAM
     Route: 048
  20. ATROPINE [Concomitant]
     Active Substance: ATROPINE
     Route: 042

REACTIONS (7)
  - Extrasystoles [Unknown]
  - Polycythaemia [Unknown]
  - Ventricular extrasystoles [Unknown]
  - Blood pressure decreased [Unknown]
  - Chest pain [Unknown]
  - Ventricular tachycardia [Unknown]
  - Atelectasis [Recovering/Resolving]
